FAERS Safety Report 25887592 (Version 1)
Quarter: 2025Q4

REPORT INFORMATION
  Report Type: Spontaneous
  Country: CA (occurrence: CA)
  Receive Date: 20251007
  Receipt Date: 20251007
  Transmission Date: 20260117
  Serious: Yes (Other)
  Sender: Haleon PLC
  Company Number: CA-002147023-NVSC2025CA152550

PATIENT
  Age: 52 Year
  Sex: Female

DRUGS (1)
  1. DICLOFENAC SODIUM [Suspect]
     Active Substance: DICLOFENAC SODIUM
     Indication: Product used for unknown indication
     Dosage: UNK

REACTIONS (5)
  - Renal impairment [Recovering/Resolving]
  - Post procedural complication [Recovering/Resolving]
  - Pain [Recovering/Resolving]
  - Glomerular filtration rate abnormal [Recovering/Resolving]
  - Diarrhoea [Recovering/Resolving]
